FAERS Safety Report 6753342-9 (Version None)
Quarter: 2010Q2

REPORT INFORMATION
  Report Type: 
  Country: None (occurrence: None)
  Receive Date: 20100603
  Receipt Date: 20100520
  Transmission Date: 20101027
  Serious: Yes (Hospitalization, Other)
  Sender: FDA-Public Use
  Company Number: US-ELI_LILLY_AND_COMPANY-US201005006839

PATIENT
  Sex: Male

DRUGS (5)
  1. FORTEO [Suspect]
     Indication: OSTEOPOROSIS
     Dosage: 20 UG, DAILY (1/D)
     Dates: start: 20100401
  2. EFFEXOR [Concomitant]
  3. KLONOPIN [Concomitant]
  4. COMBIGAN [Concomitant]
     Indication: GLAUCOMA
     Route: 047
  5. XALATAN [Concomitant]
     Indication: GLAUCOMA
     Route: 047

REACTIONS (5)
  - APHASIA [None]
  - DYSPHAGIA [None]
  - FINE MOTOR DELAY [None]
  - HEMIPLEGIA [None]
  - ISCHAEMIC STROKE [None]
